FAERS Safety Report 6490516-9 (Version None)
Quarter: 2009Q4

REPORT INFORMATION
  Report Type: 
  Country: None (occurrence: None)
  Receive Date: 20091210
  Receipt Date: 20091210
  Transmission Date: 20100525
  Serious: Yes (Hospitalization, Other)
  Sender: FDA-Public Use
  Company Number: None

PATIENT
  Age: 9 Year
  Sex: Female

DRUGS (5)
  1. CEFTRIAXONE [Suspect]
     Indication: MENINGOCOCCAL SEPSIS
     Dosage: INTRAVENOUS
  2. CEFTRIAXONE [Suspect]
     Indication: PYREXIA
     Dosage: INTRAVENOUS
  3. IBUPROFEN [Suspect]
     Indication: MENINGOCOCCAL SEPSIS
     Dosage: INTRAVENOUS
     Route: 042
  4. IBUPROFEN [Suspect]
     Indication: PYREXIA
     Dosage: INTRAVENOUS
     Route: 042
  5. PARACETAMOL [Suspect]
     Indication: PYREXIA

REACTIONS (3)
  - ABDOMINAL PAIN [None]
  - RENAL FAILURE [None]
  - VOMITING [None]
